FAERS Safety Report 7412638-8 (Version None)
Quarter: 2011Q2

REPORT INFORMATION
  Report Type: 
  Country: None (occurrence: None)
  Receive Date: 20110413
  Receipt Date: 20110407
  Transmission Date: 20111010
  Serious: No
  Sender: FDA-Public Use
  Company Number: US-PFIZER INC-2011077498

PATIENT
  Age: 47 Year
  Sex: Female
  Weight: 61.224 kg

DRUGS (3)
  1. CHANTIX [Suspect]
     Dosage: 1 MG, 2X/DAY
     Dates: start: 20110101, end: 20110326
  2. NEXIUM [Concomitant]
     Dosage: UNK
  3. CHANTIX [Suspect]
     Indication: SMOKING CESSATION THERAPY
     Dosage: 0.5 MG, 1X/DAY
     Route: 048
     Dates: start: 20110201, end: 20110101

REACTIONS (7)
  - CHAPPED LIPS [None]
  - LIP DISORDER [None]
  - HYPERSENSITIVITY [None]
  - BURNING SENSATION [None]
  - LIP PAIN [None]
  - LIP BLISTER [None]
  - FLATULENCE [None]
